FAERS Safety Report 9630617 (Version 2)
Quarter: 2013Q4

REPORT INFORMATION
  Report Type: Spontaneous
  Country: US (occurrence: None)
  Receive Date: 20131015
  Receipt Date: 20131115
  Transmission Date: 20140711
  Serious: Yes (Death, Life-Threatening, Hospitalization)
  Sender: FDA-Public Use
  Company Number: BTG00085

PATIENT
  Age: 79 Year
  Sex: Male

DRUGS (5)
  1. VORAXAZE [Suspect]
     Indication: PRODUCT USED FOR UNKNOWN INDICATION
     Dosage: 4000 UNITS, SINGLE, INTRAVENOUS
     Route: 042
  2. METHOTREXATE [Suspect]
     Indication: DIFFUSE LARGE B-CELL LYMPHOMA
     Dosage: 12MG ON D#1, INTRATHECAL
  3. LEUCOVORIN (CALCIUM FOTINATE) [Concomitant]
  4. RED BLOOD CELLS (RED BLOOD CELLS) [Concomitant]
  5. PLATELETS (PLATELETS) [Concomitant]

REACTIONS (7)
  - Subdural haematoma [None]
  - Leukaemic lymphoma [None]
  - Disease progression [None]
  - Renal failure acute [None]
  - Drug effect decreased [None]
  - Toxicity to various agents [None]
  - Overdose [None]
